FAERS Safety Report 6020264-0 (Version None)
Quarter: 2008Q4

REPORT INFORMATION
  Report Type: 
  Country: None (occurrence: None)
  Receive Date: 20081226
  Receipt Date: 20081219
  Transmission Date: 20090506
  Serious: Yes (Hospitalization, Other)
  Sender: FDA-Public Use
  Company Number: PHHY2008FR25701

PATIENT
  Age: 32 Year
  Sex: Female

DRUGS (3)
  1. TEGRETOL [Suspect]
     Indication: EPILEPSY
     Dosage: 300 MG, QD
     Dates: start: 20010101
  2. PREVISCAN [Concomitant]
     Indication: INTRACARDIAC THROMBUS
  3. TARDYFERON [Concomitant]

REACTIONS (6)
  - FEBRILE CONVULSION [None]
  - IRON DEFICIENCY [None]
  - OSTEOMALACIA [None]
  - TOOTH INFECTION [None]
  - VITAMIN C DEFICIENCY [None]
  - VITAMIN D DEFICIENCY [None]
